FAERS Safety Report 7083208-9 (Version None)
Quarter: 2010Q4

REPORT INFORMATION
  Report Type: 
  Country: None (occurrence: None)
  Receive Date: 20101104
  Receipt Date: 20090204
  Transmission Date: 20110411
  Serious: No
  Sender: FDA-Public Use
  Company Number: US-KINGPHARMUSA00001-K200900121

PATIENT
  Age: 62 Year
  Sex: Female

DRUGS (1)
  1. FLECTOR [Suspect]
     Indication: BACK PAIN
     Dosage: 1 PATCH, SINGLE
     Route: 061
     Dates: start: 20081201, end: 20081201

REACTIONS (2)
  - APPLICATION SITE HYPERSENSITIVITY [None]
  - BLISTER [None]
